FAERS Safety Report 9989539 (Version 1)
Quarter: 2014Q1

REPORT INFORMATION
  Report Type: Spontaneous
  Country: US (occurrence: US)
  Receive Date: 20140310
  Receipt Date: 20140310
  Transmission Date: 20141002
  Serious: No
  Sender: FDA-Public Use
  Company Number: US-ABBVIE-13P-163-1136794-00

PATIENT
  Age: 74 Year
  Sex: Female
  Weight: 64.92 kg

DRUGS (5)
  1. HUMIRA [Suspect]
     Indication: PSORIATIC ARTHROPATHY
     Dates: start: 2010
  2. LEVOTHYROXINE [Concomitant]
     Indication: HYPOTHYROIDISM
  3. PROZAC [Concomitant]
     Indication: DEPRESSION
  4. AMBIEN [Concomitant]
     Indication: INSOMNIA
  5. VIVELLE DOT [Concomitant]
     Indication: HORMONE REPLACEMENT THERAPY

REACTIONS (1)
  - Alopecia [Not Recovered/Not Resolved]
